FAERS Safety Report 5376296-9 (Version None)
Quarter: 2007Q2

REPORT INFORMATION
  Report Type: 
  Country: None (occurrence: None)
  Receive Date: 20070628
  Receipt Date: 20070619
  Transmission Date: 20071010
  Serious: Yes (Death, Hospitalization)
  Sender: FDA-Public Use
  Company Number: 2007-02925

PATIENT
  Age: 78 Year
  Sex: Male

DRUGS (1)
  1. COLCHICINE (WATSON LABORATORIES) (COLCHICINE) TABLET, 0.6MG [Suspect]
     Indication: GOUT
     Dosage: ORAL
     Route: 048
     Dates: end: 20070101

REACTIONS (8)
  - ABDOMINAL PAIN [None]
  - AGITATION [None]
  - BRONCHOPNEUMONIA [None]
  - COAGULOPATHY [None]
  - CONFUSIONAL STATE [None]
  - MULTI-ORGAN FAILURE [None]
  - NEUTROPENIA [None]
  - OVERDOSE [None]
